FAERS Safety Report 14814655 (Version 6)
Quarter: 2018Q3

REPORT INFORMATION
  Report Type: Report from Study
  Country: CA (occurrence: CA)
  Receive Date: 20180426
  Receipt Date: 20180805
  Transmission Date: 20181010
  Serious: Yes (Death, Hospitalization, Other)
  Sender: FDA-Public Use
  Company Number: CA-TOLMAR, INC.-2018CA004285

PATIENT

DRUGS (1)
  1. ELIGARD [Suspect]
     Active Substance: LEUPROLIDE ACETATE
     Indication: PROSTATE CANCER
     Dosage: 22.5 MG, 3 MONTH DOSE
     Route: 058
     Dates: start: 20170526, end: 20180423

REACTIONS (4)
  - Chest pain [Unknown]
  - Prostatic specific antigen increased [Unknown]
  - Off label use [Unknown]
  - Prostate cancer [Fatal]
